FAERS Safety Report 9467458 (Version 1)
Quarter: 2013Q3

REPORT INFORMATION
  Report Type: Spontaneous
  Country: FR (occurrence: FR)
  Receive Date: 20130821
  Receipt Date: 20130821
  Transmission Date: 20140515
  Serious: Yes (Life-Threatening)
  Sender: FDA-Public Use
  Company Number: PHHY2013FR090008

PATIENT
  Age: 89 Year
  Sex: Male

DRUGS (12)
  1. LEPONEX / LX [Suspect]
     Indication: HALLUCINATION, VISUAL
     Dosage: 0.5 DF, QD
     Dates: start: 20130606, end: 20130626
  2. EXELON PATCH [Suspect]
     Dosage: 4.6 MG/24H, QD
     Route: 062
     Dates: start: 20130531
  3. SINEMET [Suspect]
     Dosage: UNK (100 MG LEVODOPA/10 MG CARBIDOPA), BID
     Route: 048
  4. BISOCE [Suspect]
     Dosage: 1.25 MG
     Route: 048
  5. MECIR [Suspect]
     Dosage: 0.4 MG, QD
     Route: 048
  6. MOVICOL [Concomitant]
     Dosage: 2 DF, QD
     Route: 048
  7. INEXIUM//ESOMEPRAZOLE MAGNESIUM [Concomitant]
     Dosage: 40 MG, QD
     Route: 048
  8. KARDEGIC [Concomitant]
     Dosage: 75 MG, QD
     Route: 048
  9. PRAVASTATIN [Concomitant]
     Dosage: 20 MG, QD
     Route: 048
  10. ADANCOR [Concomitant]
     Dosage: 1 DF, QD
     Route: 048
  11. DAFALGAN [Concomitant]
     Dosage: 500 MG, PRN
     Route: 048
  12. SERESTA [Concomitant]
     Dosage: 0.5 DF, QD
     Route: 048

REACTIONS (3)
  - Syncope [Recovered/Resolved]
  - Ventricular extrasystoles [Recovered/Resolved]
  - Tachycardia [Recovered/Resolved]
